FAERS Safety Report 10726949 (Version 1)
Quarter: 2015Q1

REPORT INFORMATION
  Report Type: Spontaneous
  Country: DE (occurrence: DE)
  Receive Date: 20150121
  Receipt Date: 20150121
  Transmission Date: 20150721
  Serious: Yes (Congenital Anomaly, Other)
  Sender: FDA-Public Use
  Company Number: GXKR2015DE000603

PATIENT

DRUGS (3)
  1. CENTRUM MATERNA [Concomitant]
     Indication: PROPHYLAXIS OF NEURAL TUBE DEFECT
     Dosage: MATERNAL DOSE (0. - 9.2 GESTATIONAL WEEK): UNKNOWN
     Route: 064
     Dates: start: 20131231, end: 20140306
  2. PREDNISONE. [Suspect]
     Active Substance: PREDNISONE
     Indication: IMMUNE THROMBOCYTOPENIC PURPURA
     Dosage: MATERNAL DOSE (9.3 - 39.4 GESTATIONAL WEEK): 70 [MG/D (UP TO 5) ]
     Route: 064
     Dates: start: 20140307, end: 20141004
  3. CLEXANE [Concomitant]
     Active Substance: ENOXAPARIN SODIUM
     Indication: PROPHYLAXIS
     Dosage: MATERNAL DOSE (0. - 39.4 GESTATIONAL WEEK): 40 [MG/D ]
     Route: 064
     Dates: start: 20131231, end: 20141004

REACTIONS (2)
  - Small for dates baby [Unknown]
  - Talipes [Recovered/Resolved with Sequelae]

NARRATIVE: CASE EVENT DATE: 20141004
